FAERS Safety Report 6680130-4 (Version None)
Quarter: 2010Q2

REPORT INFORMATION
  Report Type: 
  Country: None (occurrence: None)
  Receive Date: 20100413
  Receipt Date: 20100330
  Transmission Date: 20101027
  Serious: Yes (Other)
  Sender: FDA-Public Use
  Company Number: GB-MYLANLABS-2010S1005412

PATIENT
  Age: 71 Year
  Sex: Female
  Weight: 65 kg

DRUGS (3)
  1. CITALOPRAM HYDROBROMIDE [Suspect]
     Indication: DEPRESSED MOOD
     Route: 048
     Dates: start: 20100212, end: 20100214
  2. FLUTICASONE PROPIONATE [Concomitant]
     Indication: ASTHMA
     Route: 055
     Dates: start: 20090602
  3. SALMETEROL [Concomitant]
     Indication: ASTHMA
     Route: 055
     Dates: start: 20070405

REACTIONS (2)
  - ANGLE CLOSURE GLAUCOMA [None]
  - VISUAL ACUITY REDUCED [None]
